FAERS Safety Report 26044592 (Version 1)
Quarter: 2025Q4

REPORT INFORMATION
  Report Type: Spontaneous
  Country: US (occurrence: US)
  Receive Date: 20251114
  Receipt Date: 20251114
  Transmission Date: 20260117
  Serious: No
  Sender: ALVOGEN
  Company Number: US-ALVOGEN-2024095745

PATIENT
  Sex: Female

DRUGS (2)
  1. TERIPARATIDE [Suspect]
     Active Substance: TERIPARATIDE
     Indication: Osteoporotic fracture
     Dosage: STRENGTH: 250 MCG/ML, DAILY
     Route: 058
     Dates: start: 202305
  2. TERIPARATIDE [Suspect]
     Active Substance: TERIPARATIDE
     Indication: Osteoporotic fracture
     Dosage: STRENGTH: 250 MCG/ML, DAILY (ONGOING)?THERAPY RESUMED
     Route: 058

REACTIONS (3)
  - Fatigue [Unknown]
  - Pain [Unknown]
  - Therapy interrupted [Unknown]
